FAERS Safety Report 14427027 (Version 2)
Quarter: 2018Q2

REPORT INFORMATION
  Report Type: Spontaneous
  Country: US (occurrence: US)
  Receive Date: 20180123
  Receipt Date: 20180611
  Transmission Date: 20180711
  Serious: Yes (Life-Threatening, Other)
  Sender: FDA-Public Use
  Company Number: US-BAUSCH-BL-2018-001060

PATIENT
  Sex: Female
  Weight: 68.1 kg

DRUGS (6)
  1. NIFEDIPINE EXTENDED RELEASE TABLETS [Suspect]
     Active Substance: NIFEDIPINE
     Dosage: STARTED TAKING IT EVERY OTHER DAY THEN UP TO ONCE DAILY.
     Route: 048
  2. SYNTHROID [Concomitant]
     Active Substance: LEVOTHYROXINE SODIUM
     Indication: THYROIDECTOMY
     Dosage: 125 MCG IN MORNING AND 6.25 MCG IN AFTERNOON
     Route: 048
     Dates: start: 20161115
  3. NIFEDIPINE EXTENDED RELEASE TABLETS [Suspect]
     Active Substance: NIFEDIPINE
     Indication: HYPERTENSION
     Dosage: AS NEEDED
     Route: 048
     Dates: start: 201702
  4. NIFEDIPINE EXTENDED RELEASE TABLETS [Suspect]
     Active Substance: NIFEDIPINE
     Dosage: UP TO ONCE DAILY.
     Route: 048
  5. NIFEDIPINE EXTENDED RELEASE TABLETS [Suspect]
     Active Substance: NIFEDIPINE
     Dosage: CUTTING THE TABLET IN FOURTHS AND WAS STILL NOTICED THE SIDE EFFECTS
     Route: 048
  6. NIFEDIPINE EXTENDED RELEASE TABLETS [Suspect]
     Active Substance: NIFEDIPINE
     Dosage: ONLY WHEN NEEDED DUE TO ALL THE SIDE EFFECTS EXPERIENCED
     Route: 048
     Dates: start: 2017

REACTIONS (20)
  - Suicidal ideation [Recovered/Resolved]
  - Anger [Recovered/Resolved]
  - Feeling abnormal [Recovered/Resolved]
  - Aggression [Recovered/Resolved]
  - Drug dependence [Recovered/Resolved]
  - Cardiac failure [Unknown]
  - Hyperhidrosis [Recovered/Resolved]
  - Incorrect dose administered [Recovered/Resolved]
  - Palpitations [Recovered/Resolved]
  - Alopecia [Recovered/Resolved]
  - Renal failure [Unknown]
  - Dizziness [Recovered/Resolved]
  - Malaise [Unknown]
  - Treatment noncompliance [Recovered/Resolved]
  - Blood pressure increased [Recovered/Resolved]
  - Nausea [Recovered/Resolved]
  - Weight decreased [Recovered/Resolved]
  - Dehydration [Recovered/Resolved]
  - Wrong technique in product usage process [Recovered/Resolved]
  - Flushing [Recovered/Resolved]

NARRATIVE: CASE EVENT DATE: 2017
